FAERS Safety Report 5841874-7 (Version None)
Quarter: 2008Q3

REPORT INFORMATION
  Report Type: 
  Country: None (occurrence: None)
  Receive Date: 20080811
  Receipt Date: 20080811
  Transmission Date: 20090109
  Serious: Yes (Other)
  Sender: FDA-Public Use
  Company Number: None

PATIENT
  Age: 29 Year
  Sex: Female
  Weight: 46.2669 kg

DRUGS (1)
  1. LAMICTAL [Suspect]
     Indication: BIPOLAR II DISORDER
     Dosage: 100MG DAILY PO
     Route: 048
     Dates: start: 20080418, end: 20080717

REACTIONS (2)
  - DYSPNOEA [None]
  - NO THERAPEUTIC RESPONSE [None]
